FAERS Safety Report 7827442-6 (Version None)
Quarter: 2011Q4

REPORT INFORMATION
  Report Type: 
  Country: None (occurrence: None)
  Receive Date: 20111020
  Receipt Date: 20111018
  Transmission Date: 20120403
  Serious: Yes (Death, Life-Threatening, Hospitalization, Disabling, Other)
  Sender: FDA-Public Use
  Company Number: US-BAYER-201011109NA

PATIENT
  Age: 71 Year
  Sex: Male

DRUGS (16)
  1. PROCRIT [Concomitant]
     Indication: ANAEMIA
     Dosage: 40,000 WEEKLY
     Route: 058
     Dates: start: 20080123
  2. INDERAL LA [Concomitant]
     Indication: HYPERTENSION
     Route: 048
     Dates: start: 20070227
  3. TORSEMIDE [Concomitant]
     Indication: OEDEMA
     Route: 048
     Dates: start: 20080123, end: 20100115
  4. IMODIUM [Concomitant]
     Indication: DIARRHOEA
     Dosage: 2-4 MG
     Route: 048
  5. LACTULOSE [Concomitant]
     Indication: HEPATIC ENCEPHALOPATHY
     Route: 048
     Dates: start: 20070606
  6. SPIRONOLACTONE [Concomitant]
     Indication: OEDEMA
     Route: 048
     Dates: start: 20080123, end: 20100115
  7. ALLOPURINOL [Concomitant]
     Dosage: 100 MG, QD
     Route: 048
     Dates: start: 20070201, end: 20100115
  8. NEXAVAR [Suspect]
     Indication: HEPATIC NEOPLASM MALIGNANT
     Route: 048
     Dates: start: 20091102, end: 20091108
  9. RIFAXIMIN [Concomitant]
     Indication: HEPATIC ENCEPHALOPATHY
     Dosage: 1200 MG (DAILY DOSE), , ORAL
     Route: 048
     Dates: start: 20090922
  10. LACTULOSE [Concomitant]
     Dosage: DOSE INCREASED
     Dates: start: 20100101
  11. PREVACID [Concomitant]
     Indication: GASTRIC ULCER
     Route: 048
     Dates: start: 20070606
  12. ALLOPURINOL [Concomitant]
     Dosage: 100 MG, QD
     Route: 048
     Dates: start: 20091208
  13. MULTI-VITAMIN [Concomitant]
     Indication: ANAEMIA
     Dosage: 1 CAPSULE
     Route: 048
     Dates: start: 20070102
  14. NEXAVAR [Suspect]
     Route: 048
     Dates: start: 20091109, end: 20100115
  15. ZOFRAN [Suspect]
     Dosage: 4-8 MG, PRN
     Route: 042
     Dates: start: 20100106, end: 20100129
  16. FOLIC ACID [Concomitant]
     Indication: ANAEMIA
     Route: 048
     Dates: start: 20070129

REACTIONS (8)
  - DYSPNOEA [None]
  - HYPERKALAEMIA [None]
  - DEEP VEIN THROMBOSIS [None]
  - RENAL FAILURE ACUTE [None]
  - ENCEPHALOPATHY [None]
  - ATRIAL FIBRILLATION [None]
  - PULMONARY OEDEMA [None]
  - SOMNOLENCE [None]
